FAERS Safety Report 8621920-8 (Version None)
Quarter: 2012Q3

REPORT INFORMATION
  Report Type: 
  Country: None (occurrence: None)
  Receive Date: 20120822
  Receipt Date: 20120822
  Transmission Date: 20120928
  Serious: Yes (Disabling)
  Sender: FDA-Public Use
  Company Number: None

PATIENT
  Age: 36 Year
  Sex: Female
  Weight: 81.6475 kg

DRUGS (1)
  1. LEVAQUIN [Suspect]
     Indication: BRONCHITIS
     Dosage: 750 MG 1X DAY PO
     Route: 048
     Dates: start: 20110201, end: 20110205

REACTIONS (5)
  - TENDON DISORDER [None]
  - PAIN [None]
  - GAIT DISTURBANCE [None]
  - ARTHRALGIA [None]
  - INFLUENZA [None]
